FAERS Safety Report 10034274 (Version 1)
Quarter: 2014Q1

REPORT INFORMATION
  Report Type: Spontaneous
  Country: US (occurrence: US)
  Receive Date: 20140325
  Receipt Date: 20140325
  Transmission Date: 20141002
  Serious: Yes (Hospitalization)
  Sender: FDA-Public Use
  Company Number: US-AMGEN-USASP2014020396

PATIENT
  Age: 60 Year
  Sex: Female

DRUGS (2)
  1. ENBREL [Suspect]
     Indication: PSORIATIC ARTHROPATHY
     Dosage: UNK UNK, QWK
     Route: 065
     Dates: start: 20131227, end: 201402
  2. METHOTREXATE [Concomitant]
     Dosage: 10 PILLS, UNK

REACTIONS (5)
  - Renal failure [Recovered/Resolved]
  - Back pain [Recovered/Resolved]
  - Pelvic pain [Recovered/Resolved]
  - Swelling [Recovered/Resolved]
  - Escherichia infection [Recovered/Resolved]
